FAERS Safety Report 9633891 (Version 1)
Quarter: 2013Q2

REPORT INFORMATION
  Report Type: Spontaneous
  Country: FR (occurrence: None)
  Receive Date: 20130528
  Receipt Date: 20130528
  Transmission Date: 20140414
  Serious: Yes (Hospitalization)
  Sender: FDA-Public Use
  Company Number: 221501

PATIENT
  Age: 61 Year
  Sex: Male

DRUGS (6)
  1. INNOHEP [Suspect]
     Indication: PULMONARY EMBOLISM
     Route: 058
     Dates: start: 20130321
  2. COUMADINE [Suspect]
     Indication: PULMONARY EMBOLISM
     Route: 048
     Dates: start: 20130321, end: 20130327
  3. FENOFIBRATE [Suspect]
     Indication: PRODUCT USED FOR UNKNOWN INDICATION
     Route: 048
     Dates: start: 20130327
  4. HEPARIN LEO (HEPARIN SODIUM) [Concomitant]
  5. PROTON PUMP INHIBITORS (PROTON PUMP INHIBITORS) [Concomitant]
  6. G5 (GLUCOSE) [Concomitant]

REACTIONS (1)
  - Aspartate aminotransferase increased [None]
